FAERS Safety Report 15461675 (Version 1)
Quarter: 2018Q4

REPORT INFORMATION
  Report Type: Spontaneous
  Country: DE (occurrence: DE)
  Receive Date: 20181003
  Receipt Date: 20181003
  Transmission Date: 20190204
  Serious: Yes (Hospitalization, Other)
  Sender: FDA-Public Use
  Company Number: DE-BAUSCH-BL-2018-027054

PATIENT
  Age: 59 Year
  Sex: Female
  Weight: 83.9 kg

DRUGS (15)
  1. IRINOTECAN [Suspect]
     Active Substance: IRINOTECAN
     Indication: COLORECTAL CANCER
     Route: 042
     Dates: start: 20150706, end: 20150706
  2. COLECALCIFEROL [Concomitant]
     Active Substance: CHOLECALCIFEROL
     Indication: ARTHRITIS
     Route: 048
  3. AVASTIN [Suspect]
     Active Substance: BEVACIZUMAB
     Route: 042
     Dates: start: 20150831, end: 20150831
  4. FLUOROURACIL. [Suspect]
     Active Substance: FLUOROURACIL
     Indication: COLORECTAL CANCER
     Dosage: DURATION: 1 MONTH 28 DAYS
     Route: 065
     Dates: start: 20150706, end: 20150902
  5. IRINOTECAN [Suspect]
     Active Substance: IRINOTECAN
     Indication: OFF LABEL USE
     Route: 042
     Dates: start: 20150831, end: 20150831
  6. SIMVASTATIN. [Suspect]
     Active Substance: SIMVASTATIN
     Route: 042
     Dates: start: 20150831, end: 20150831
  7. SIMVASTATIN. [Suspect]
     Active Substance: SIMVASTATIN
     Route: 042
     Dates: start: 20151005, end: 20151019
  8. AVASTIN [Suspect]
     Active Substance: BEVACIZUMAB
     Indication: COLORECTAL CANCER
     Dosage: DURATION: 1 MONTH 1 DAY
     Route: 042
     Dates: start: 20150606, end: 20150706
  9. FOLINIC ACID [Suspect]
     Active Substance: LEUCOVORIN
     Indication: PRODUCT USED FOR UNKNOWN INDICATION
     Dosage: DURATION: 1 MONTH 26 DAYS 12 HOURS
     Route: 065
     Dates: start: 20150706, end: 20150831
  10. PANTOPRAZOLE [Concomitant]
     Active Substance: PANTOPRAZOLE
     Indication: PRODUCT USED FOR UNKNOWN INDICATION
  11. PREDNISOLONE. [Suspect]
     Active Substance: PREDNISOLONE
     Indication: PRODUCT USED FOR UNKNOWN INDICATION
     Route: 065
  12. PREDNISOLONE. [Suspect]
     Active Substance: PREDNISOLONE
     Indication: OFF LABEL USE
  13. AVASTIN [Suspect]
     Active Substance: BEVACIZUMAB
     Route: 042
     Dates: start: 20151005, end: 20151019
  14. SIMVASTATIN. [Suspect]
     Active Substance: SIMVASTATIN
     Indication: COLORECTAL CANCER
     Route: 042
     Dates: start: 20150706, end: 20150706
  15. SULFASALAZINE. [Concomitant]
     Active Substance: SULFASALAZINE
     Indication: PRODUCT USED FOR UNKNOWN INDICATION

REACTIONS (6)
  - Urinary tract infection [Recovered/Resolved]
  - Hypertension [Recovering/Resolving]
  - Pulmonary embolism [Recovered/Resolved]
  - Neutropenia [Recovered/Resolved]
  - Off label use [Unknown]
  - Leukopenia [Recovering/Resolving]

NARRATIVE: CASE EVENT DATE: 20150706
